FAERS Safety Report 9100914 (Version 2)
Quarter: 2013Q1

REPORT INFORMATION
  Report Type: Spontaneous
  Country: DK (occurrence: DK)
  Receive Date: 20130214
  Receipt Date: 20130225
  Transmission Date: 20140127
  Serious: Yes (Congenital Anomaly)
  Sender: FDA-Public Use
  Company Number: DK-PFIZER INC-2013058278

PATIENT
  Sex: Male

DRUGS (1)
  1. MISOPROSTOL [Suspect]
     Dosage: 50 UG, SINGLE
     Route: 064
     Dates: start: 20121007, end: 20121007

REACTIONS (4)
  - Bradycardia foetal [Unknown]
  - Foetal distress syndrome [Unknown]
  - Extrasystoles [Unknown]
  - Maternal exposure during pregnancy [Unknown]
